FAERS Safety Report 12456728 (Version 2)
Quarter: 2016Q2

REPORT INFORMATION
  Report Type: Spontaneous
  Country: AU (occurrence: AU)
  Receive Date: 20160610
  Receipt Date: 20160627
  Transmission Date: 20160815
  Serious: Yes (Hospitalization, Congenital Anomaly, Other)
  Sender: FDA-Public Use
  Company Number: AU-BIOGEN-2016BI00247480

PATIENT
  Age: 0 Day
  Sex: Female
  Weight: 2.4 kg

DRUGS (1)
  1. TYSABRI [Suspect]
     Active Substance: NATALIZUMAB
     Indication: MATERNAL EXPOSURE TIMING UNSPECIFIED
     Dosage: INFUSED OVER 1 HOUR
     Route: 064
     Dates: start: 201407

REACTIONS (13)
  - Anaemia neonatal [Unknown]
  - Jaundice neonatal [Recovered/Resolved]
  - Thrombocytopenia neonatal [Recovered/Resolved]
  - Persistent foetal circulation [Recovered/Resolved]
  - Premature baby [Recovered/Resolved]
  - Apgar score abnormal [Recovered/Resolved]
  - Neonatal respiratory distress syndrome [Recovered/Resolved]
  - Patent ductus arteriosus [Recovered/Resolved]
  - Low birth weight baby [Recovered/Resolved]
  - Hypernatraemia [Recovered/Resolved]
  - Foetal exposure timing unspecified [Recovered/Resolved]
  - Coagulation disorder neonatal [Recovered/Resolved]
  - Atrial septal defect [Recovered/Resolved]

NARRATIVE: CASE EVENT DATE: 20160104
